FAERS Safety Report 5398887-1 (Version None)
Quarter: 2007Q3

REPORT INFORMATION
  Report Type: 
  Country: None (occurrence: None)
  Receive Date: 20070727
  Receipt Date: 20070720
  Transmission Date: 20080115
  Serious: Yes (Death, Other)
  Sender: FDA-Public Use
  Company Number: HQWYE522528JUL04

PATIENT
  Sex: Female

DRUGS (1)
  1. PREMPRO [Suspect]

REACTIONS (2)
  - CERVIX CANCER METASTATIC [None]
  - DEEP VEIN THROMBOSIS [None]
